FAERS Safety Report 25019220 (Version 5)
Quarter: 2025Q3

REPORT INFORMATION
  Report Type: Spontaneous
  Country: US (occurrence: US)
  Receive Date: 20250227
  Receipt Date: 20250916
  Transmission Date: 20251020
  Serious: No
  Sender: ELI LILLY AND COMPANY
  Company Number: US-ELI_LILLY_AND_COMPANY-US202502018205

PATIENT
  Age: 60 Year
  Sex: Male
  Weight: 124.72 kg

DRUGS (16)
  1. TADALAFIL [Suspect]
     Active Substance: TADALAFIL
     Indication: Product used for unknown indication
     Route: 065
  2. ORENITRAM [Suspect]
     Active Substance: TREPROSTINIL
     Indication: Pulmonary arterial hypertension
     Route: 065
     Dates: start: 20250123
  3. ORENITRAM [Suspect]
     Active Substance: TREPROSTINIL
     Route: 065
     Dates: start: 20250123
  4. ORENITRAM [Suspect]
     Active Substance: TREPROSTINIL
     Dosage: 0.75 MG, TID
     Route: 048
     Dates: start: 20250124
  5. ORENITRAM [Suspect]
     Active Substance: TREPROSTINIL
     Route: 065
     Dates: start: 202501
  6. ORENITRAM [Suspect]
     Active Substance: TREPROSTINIL
     Dosage: 2.25 MG, TID (USING TWO 1MG)
     Route: 065
  7. METFORMIN HYDROCHLORIDE [Concomitant]
     Active Substance: METFORMIN HYDROCHLORIDE
     Indication: Product used for unknown indication
     Route: 065
  8. OMEPRAZOLE [Concomitant]
     Active Substance: OMEPRAZOLE
     Indication: Product used for unknown indication
     Route: 065
  9. MACITENTAN\TADALAFIL [Concomitant]
     Active Substance: MACITENTAN\TADALAFIL
     Indication: Product used for unknown indication
     Route: 065
  10. BASAGLAR KWIKPEN [Concomitant]
     Active Substance: INSULIN GLARGINE
     Indication: Product used for unknown indication
     Route: 065
  11. ATORVASTATIN CALCIUM [Concomitant]
     Active Substance: ATORVASTATIN CALCIUM
     Indication: Product used for unknown indication
     Route: 065
  12. BUMETANIDE [Concomitant]
     Active Substance: BUMETANIDE
     Indication: Product used for unknown indication
     Route: 065
  13. CALCIUM CARBONATE\MAGNESIUM CARBONATE [Concomitant]
     Active Substance: CALCIUM CARBONATE\MAGNESIUM CARBONATE
     Indication: Product used for unknown indication
     Route: 065
  14. LISINOPRIL [Concomitant]
     Active Substance: LISINOPRIL
     Indication: Product used for unknown indication
     Route: 065
  15. OXYGEN [Concomitant]
     Active Substance: OXYGEN
     Indication: Product used for unknown indication
     Route: 065
  16. ONDANSETRON HYDROCHLORIDE [Concomitant]
     Active Substance: ONDANSETRON HYDROCHLORIDE
     Indication: Product used for unknown indication
     Route: 065

REACTIONS (11)
  - Diplopia [Unknown]
  - Strabismus [Unknown]
  - Faeces soft [Unknown]
  - Vitreous floaters [Unknown]
  - Oxygen saturation decreased [Unknown]
  - Visual impairment [Unknown]
  - Cough [Unknown]
  - Diarrhoea [Recovered/Resolved]
  - Hypertension [Unknown]
  - Dyspepsia [Unknown]
  - Vision blurred [Unknown]

NARRATIVE: CASE EVENT DATE: 20250101
